FAERS Safety Report 10200289 (Version 3)
Quarter: 2014Q2

REPORT INFORMATION
  Report Type: Spontaneous
  Country: JP (occurrence: JP)
  Receive Date: 20140527
  Receipt Date: 20140605
  Transmission Date: 20141212
  Serious: Yes (Other)
  Sender: FDA-Public Use
  Company Number: JP-UCBSA-118210

PATIENT
  Age: 88 Year
  Sex: Female

DRUGS (1)
  1. NEUPRO [Suspect]
     Indication: PARKINSON^S DISEASE
     Dosage: 4MG DAILY
     Route: 061
     Dates: start: 20140324, end: 20140329

REACTIONS (1)
  - Hepatic function abnormal [Recovered/Resolved]
